FAERS Safety Report 13582506 (Version 1)
Quarter: 2017Q2

REPORT INFORMATION
  Report Type: Spontaneous
  Country: US (occurrence: US)
  Receive Date: 20170525
  Receipt Date: 20170525
  Transmission Date: 20170830
  Serious: Yes (Other)
  Sender: FDA-Public Use
  Company Number: US-PFIZER INC-2017225801

PATIENT
  Age: 79 Year
  Sex: Male

DRUGS (14)
  1. DOXAZOSIN MESYLATE. [Concomitant]
     Active Substance: DOXAZOSIN MESYLATE
     Dosage: 2 MG, UNK
     Route: 048
  2. PANTOPRAZOLE SODIUM. [Concomitant]
     Active Substance: PANTOPRAZOLE SODIUM
     Dosage: 40 MG, UNK
     Route: 048
     Dates: start: 20170207
  3. CEFDINIR. [Concomitant]
     Active Substance: CEFDINIR
     Dosage: 300 MG, UNK
  4. LISINOPRIL. [Concomitant]
     Active Substance: LISINOPRIL
  5. CURCUMIN [Concomitant]
     Active Substance: CURCUMIN
     Dosage: 500 MG, UNK
     Route: 048
  6. AMOXI-CLAVULAN [Concomitant]
     Dosage: UNK [AMOXICILLIN TRIHYDRATE: 875 MG]/ [CLAVULANATE POTASSIUM: 125 MG]
  7. ACETAMINOPHEN W/HYDROCODONE [Concomitant]
     Active Substance: ACETAMINOPHEN\HYDROCODONE
     Dosage: 1 DF, AS NEEDED[HYDROCODONE: 10 MG]/ [PARACETAMOL: 325 MG]
     Route: 048
  8. CIALIS [Concomitant]
     Active Substance: TADALAFIL
     Dosage: 5 MG, UNK
  9. ASPIRIN 81 [Concomitant]
     Active Substance: ASPIRIN
     Dosage: 81 MG, DAILY
  10. MAGNESIUM OXIDE. [Concomitant]
     Active Substance: MAGNESIUM OXIDE
     Dosage: 400 UG, UNK
     Route: 048
     Dates: start: 20170207
  11. TIKOSYN [Suspect]
     Active Substance: DOFETILIDE
     Indication: ATRIAL FIBRILLATION
     Dosage: 250 UG, 2X/DAY
     Route: 048
  12. BENZONATATE. [Concomitant]
     Active Substance: BENZONATATE
     Dosage: 200 MG, UNK
  13. LEVOTHYROXINE SODIUM. [Concomitant]
     Active Substance: LEVOTHYROXINE SODIUM
     Dosage: 50 UG, DAILY
     Route: 048
     Dates: start: 20150129
  14. NITROSTAT [Concomitant]
     Active Substance: NITROGLYCERIN
     Indication: CHEST PAIN
     Dosage: 0.4 UG, AS NEEDED(1 TABLET UNDER THE TONGUE, EVERY 5 MINUTES FOR UPTO 3 DOSES)
     Route: 060
     Dates: start: 20130904

REACTIONS (4)
  - Gastrointestinal haemorrhage [Recovered/Resolved]
  - Stress [Unknown]
  - Ulcer [Recovered/Resolved]
  - Pneumonia [Unknown]
